FAERS Safety Report 16995859 (Version 2)
Quarter: 2019Q4

REPORT INFORMATION
  Report Type: Spontaneous
  Country: US (occurrence: US)
  Receive Date: 20191105
  Receipt Date: 20191120
  Transmission Date: 20200122
  Serious: No
  Sender: FDA-Public Use
  Company Number: US-SA-2019SA298188

PATIENT

DRUGS (5)
  1. WELCHOL [Suspect]
     Active Substance: COLESEVELAM HYDROCHLORIDE
     Dosage: 6/DAY
  2. ZETIA [Concomitant]
     Active Substance: EZETIMIBE
     Dosage: 5 MG
  3. PRALUENT [Suspect]
     Active Substance: ALIROCUMAB
     Dosage: 150 MG, QOW
     Dates: start: 201909
  4. NIASPAN [Concomitant]
     Active Substance: NIACIN
     Dosage: UNK
  5. METFORMIN [Concomitant]
     Active Substance: METFORMIN HYDROCHLORIDE
     Dosage: UNK UNK, QD (DOSE: 200 AND UNITS: NOT REPORTED)

REACTIONS (3)
  - Gastrointestinal disorder [Recovered/Resolved]
  - Lipids increased [Unknown]
  - Therapeutic response decreased [Unknown]
